FAERS Safety Report 5939735-8 (Version None)
Quarter: 2008Q4

REPORT INFORMATION
  Report Type: 
  Country: None (occurrence: None)
  Receive Date: 20081031
  Receipt Date: 20081031
  Transmission Date: 20090506
  Serious: Yes (Hospitalization)
  Sender: FDA-Public Use
  Company Number: None

PATIENT
  Age: 83 Year
  Sex: Male

DRUGS (2)
  1. LINEZOLID [Suspect]
     Indication: DEPRESSION
     Dosage: 600MG Q12H IV
     Route: 042
  2. CITALOPRAM HYDROBROMIDE [Suspect]
     Indication: PNEUMONIA
     Dosage: 20 MG DAILY PO, 2-3 DAYS
     Route: 048

REACTIONS (3)
  - HYPERTENSION [None]
  - SEROTONIN SYNDROME [None]
  - VENTRICULAR TACHYCARDIA [None]
